FAERS Safety Report 22521037 (Version 1)
Quarter: 2023Q2

REPORT INFORMATION
  Report Type: Spontaneous
  Country: FR (occurrence: FR)
  Receive Date: 20230605
  Receipt Date: 20230605
  Transmission Date: 20230721
  Serious: Yes (Other)
  Sender: FDA-Public Use
  Company Number: FR-TAKEDA-2023TUS052999

PATIENT
  Sex: Female

DRUGS (1)
  1. ALUNBRIG [Suspect]
     Active Substance: BRIGATINIB
     Indication: Product used for unknown indication
     Dosage: UNK
     Route: 065
     Dates: start: 20230214

REACTIONS (1)
  - Drug reaction with eosinophilia and systemic symptoms [Unknown]
